FAERS Safety Report 8022373-3 (Version None)
Quarter: 2012Q1

REPORT INFORMATION
  Report Type: 
  Country: None (occurrence: None)
  Receive Date: 20120104
  Receipt Date: 20111223
  Transmission Date: 20120608
  Serious: Yes (Life-Threatening, Hospitalization)
  Sender: FDA-Public Use
  Company Number: US-ACTELION-A-NJ2011-58914

PATIENT

DRUGS (7)
  1. COREG [Concomitant]
  2. INSPRA [Concomitant]
  3. LASIX [Concomitant]
  4. DIOVAN [Concomitant]
  5. POTASSIUM CHLORIDE [Concomitant]
  6. METOLAZONE [Concomitant]
  7. TRACLEER [Suspect]
     Indication: PULMONARY ARTERIAL HYPERTENSION
     Dosage: UNK
     Route: 048
     Dates: start: 20090128, end: 20110101

REACTIONS (5)
  - DRUG INTERACTION [None]
  - PULMONARY OEDEMA [None]
  - FLUID RETENTION [None]
  - OEDEMA [None]
  - DYSPNOEA [None]
